FAERS Safety Report 5939948-5 (Version None)
Quarter: 2008Q4

REPORT INFORMATION
  Report Type: 
  Country: None (occurrence: None)
  Receive Date: 20081104
  Receipt Date: 20081027
  Transmission Date: 20090506
  Serious: Yes (Disabling)
  Sender: FDA-Public Use
  Company Number: CA-ASTRAZENECA-2008UW24447

PATIENT
  Sex: Female

DRUGS (4)
  1. CRESTOR [Suspect]
     Indication: BLOOD CHOLESTEROL INCREASED
     Route: 048
     Dates: start: 20081022
  2. TYLENOL W/ CODEINE NO. 3 [Concomitant]
  3. LORAZEPAM [Concomitant]
  4. ZOPICLONE [Concomitant]

REACTIONS (3)
  - MOBILITY DECREASED [None]
  - MYALGIA [None]
  - NECK PAIN [None]
